FAERS Safety Report 19513373 (Version 1)
Quarter: 2021Q3

REPORT INFORMATION
  Report Type: Spontaneous
  Country: NL (occurrence: NL)
  Receive Date: 20210709
  Receipt Date: 20210709
  Transmission Date: 20211014
  Serious: Yes (Other)
  Sender: FDA-Public Use
  Company Number: NL-ACCORD-231020

PATIENT
  Age: 71 Year
  Sex: Female
  Weight: 95 kg

DRUGS (4)
  1. HYDROXYCHLOROQUINE [Suspect]
     Active Substance: HYDROXYCHLOROQUINE
     Indication: LICHEN PLANOPILARIS
     Dosage: 1 X PER DAY 1 PIECE
     Dates: start: 2021, end: 20210615
  2. SPIRONOLACTONE. [Concomitant]
     Active Substance: SPIRONOLACTONE
     Dosage: TABLET, 12.5 MG (MILLIGRAM)
  3. HYDROCHLOROTHIAZIDE. [Concomitant]
     Active Substance: HYDROCHLOROTHIAZIDE
     Dosage: TABLET, 12,5 MG (MILLIGRAM)
  4. DOXAZOSIN [Concomitant]
     Active Substance: DOXAZOSIN MESYLATE
     Indication: PRODUCT USED FOR UNKNOWN INDICATION

REACTIONS (5)
  - Palpitations [Recovering/Resolving]
  - Polyuria [Recovering/Resolving]
  - Dizziness [Recovering/Resolving]
  - Atrial fibrillation [Recovering/Resolving]
  - Tachycardia [Recovering/Resolving]

NARRATIVE: CASE EVENT DATE: 20210615
